FAERS Safety Report 19046620 (Version 3)
Quarter: 2021Q2

REPORT INFORMATION
  Report Type: Other
  Country: CA (occurrence: CA)
  Receive Date: 20210322
  Receipt Date: 20210523
  Transmission Date: 20210717
  Serious: Yes (Other)
  Sender: FDA-Public Use
  Company Number: CA-CELLTRION INC.-2021CA003574

PATIENT

DRUGS (9)
  1. TAXOL [Concomitant]
     Active Substance: PACLITAXEL
     Indication: HER2 POSITIVE BREAST CANCER
  2. TRAZODONE [Concomitant]
     Active Substance: TRAZODONE HYDROCHLORIDE
     Indication: INSOMNIA
  3. CYTOXAN [Concomitant]
     Active Substance: CYCLOPHOSPHAMIDE
     Indication: HER2 POSITIVE BREAST CANCER
     Route: 065
  4. VENLAFAXINE HYDROCHLORIDE. [Concomitant]
     Active Substance: VENLAFAXINE HYDROCHLORIDE
  5. TRASTUZUMAB (UNKNOWN) [Suspect]
     Active Substance: TRASTUZUMAB
     Indication: HER2 POSITIVE BREAST CANCER
     Route: 042
  6. KADCYLA [Suspect]
     Active Substance: ADO-TRASTUZUMAB EMTANSINE
     Indication: HER2 POSITIVE BREAST CANCER
     Dosage: 298.0 MILLIGRAM, 1 EVERY 3 WEEKS
     Route: 042
  7. BENADRYL [Concomitant]
     Active Substance: DIPHENHYDRAMINE HYDROCHLORIDE
  8. GRAVOL [Concomitant]
     Active Substance: DIMENHYDRINATE
  9. DOXORUBICIN [Concomitant]
     Active Substance: DOXORUBICIN
     Indication: HER2 POSITIVE BREAST CANCER
     Route: 065

REACTIONS (12)
  - Nausea [Unknown]
  - Oral mucosal erythema [Unknown]
  - Glossitis [Unknown]
  - Blood pressure increased [Unknown]
  - Hypotension [Unknown]
  - Pharyngeal paraesthesia [Unknown]
  - Tongue dry [Unknown]
  - Erythema [Unknown]
  - Hypertension [Unknown]
  - Blood pressure systolic increased [Unknown]
  - Pharyngeal inflammation [Unknown]
  - Stomatitis [Unknown]
